FAERS Safety Report 21596059 (Version 4)
Quarter: 2024Q3

REPORT INFORMATION
  Report Type: Spontaneous
  Country: JP (occurrence: JP)
  Receive Date: 20221115
  Receipt Date: 20240904
  Transmission Date: 20241017
  Serious: No
  Sender: NOVARTIS
  Company Number: JP-002147023-NVSJ2022JP101116

PATIENT

DRUGS (1)
  1. ELTROMBOPAG OLAMINE [Suspect]
     Active Substance: ELTROMBOPAG OLAMINE
     Indication: Aplastic anaemia
     Dosage: UNK
     Route: 048

REACTIONS (1)
  - Therapy non-responder [Unknown]
